FAERS Safety Report 4906012-3 (Version None)
Quarter: 2006Q1

REPORT INFORMATION
  Report Type: 
  Country: None (occurrence: None)
  Receive Date: 20060206
  Receipt Date: 20060126
  Transmission Date: 20060701
  Serious: Yes (Death, Life-Threatening, Hospitalization)
  Sender: FDA-Public Use
  Company Number: 200509IM000548

PATIENT
  Age: 75 Year
  Sex: Male

DRUGS (3)
  1. ACTIMMUNE [Suspect]
     Indication: INTERSTITIAL LUNG DISEASE
     Dosage: 200 UG; TIW, SUBCUTANEOUS
     Route: 058
     Dates: start: 20030425, end: 20050809
  2. LIDOCAINE [Concomitant]
  3. HEPARIN [Concomitant]

REACTIONS (24)
  - ACUTE RESPIRATORY DISTRESS SYNDROME [None]
  - BODY TEMPERATURE INCREASED [None]
  - CARDIAC ARREST [None]
  - CARDIO-RESPIRATORY ARREST [None]
  - COAGULOPATHY [None]
  - CONVULSION [None]
  - CORONARY ARTERY REOCCLUSION [None]
  - DYSPNOEA EXERTIONAL [None]
  - EJECTION FRACTION DECREASED [None]
  - FATIGUE [None]
  - HAEMATOCRIT DECREASED [None]
  - HAEMOGLOBIN DECREASED [None]
  - HEPATIC ISCHAEMIA [None]
  - HYPOTENSION [None]
  - LIVER FUNCTION TEST ABNORMAL [None]
  - MITRAL VALVE INCOMPETENCE [None]
  - POST PROCEDURAL COMPLICATION [None]
  - PULMONARY ARTERIAL PRESSURE INCREASED [None]
  - PULMONARY HAEMORRHAGE [None]
  - PULSE ABSENT [None]
  - RENAL FAILURE [None]
  - THROMBOCYTOPENIA [None]
  - TRICUSPID VALVE INCOMPETENCE [None]
  - VENTRICULAR FIBRILLATION [None]
